FAERS Safety Report 24741132 (Version 1)
Quarter: 2024Q4

REPORT INFORMATION
  Report Type: Spontaneous
  Country: CN (occurrence: CN)
  Receive Date: 20241217
  Receipt Date: 20241217
  Transmission Date: 20250114
  Serious: Yes (Other)
  Sender: BEIGENE
  Company Number: CN-BEIGENE-BGN-2024-020057

PATIENT

DRUGS (5)
  1. TISLELIZUMAB [Suspect]
     Active Substance: TISLELIZUMAB
     Indication: Oesophageal carcinoma
     Dosage: 200 MILLIGRAM, Q3WK D1
     Route: 041
     Dates: start: 20241117
  2. CISPLATIN [Suspect]
     Active Substance: CISPLATIN
     Indication: Oesophageal carcinoma
     Dosage: 30 MILLIGRAM Q3WK D1-D3
     Route: 041
     Dates: start: 20241117
  3. PACLITAXEL [Suspect]
     Active Substance: PACLITAXEL
     Indication: Oesophageal carcinoma
     Dosage: 100 MILLIGRAM Q3WK D1
     Route: 041
     Dates: start: 20241117
  4. PACLITAXEL [Suspect]
     Active Substance: PACLITAXEL
     Dosage: 200 MILLIGRAM Q3WK D8
     Route: 041
     Dates: start: 20241124
  5. SINTILIMAB [Concomitant]
     Active Substance: SINTILIMAB
     Indication: Oesophageal carcinoma
     Dosage: 200 MILLIGRAM D1
     Route: 041
     Dates: start: 20241117

REACTIONS (1)
  - Myelosuppression [Recovering/Resolving]

NARRATIVE: CASE EVENT DATE: 20241126
